FAERS Safety Report 14593186 (Version 2)
Quarter: 2018Q1

REPORT INFORMATION
  Report Type: Report from Study
  Country: DE (occurrence: DE)
  Receive Date: 20180302
  Receipt Date: 20180313
  Transmission Date: 20180509
  Serious: Yes (Death)
  Sender: FDA-Public Use
  Company Number: PHHY2018DE034237

PATIENT
  Age: 50 Year
  Sex: Male
  Weight: 85 kg

DRUGS (1)
  1. ENTRESTO [Suspect]
     Active Substance: SACUBITRIL\VALSARTAN
     Indication: CARDIAC FAILURE
     Dosage: 0.5 DF (49 MG SACUBITRIL AND 51 MG VALSARTAN), QD (1-0-0)
     Route: 048
     Dates: start: 20170702

REACTIONS (9)
  - Multiple organ dysfunction syndrome [Fatal]
  - Coronary artery disease [Fatal]
  - Cardiogenic shock [Fatal]
  - Wrong technique in product usage process [Unknown]
  - Inappropriate schedule of drug administration [Unknown]
  - Ventricular arrhythmia [Fatal]
  - Prescribed underdose [Unknown]
  - Coronary no-reflow phenomenon [Fatal]
  - Coronary artery occlusion [Fatal]

NARRATIVE: CASE EVENT DATE: 20170702
